FAERS Safety Report 8797603 (Version 1)
Quarter: 2012Q4

REPORT INFORMATION
  Report Type: 
  Country: US (occurrence: US)
  Receive Date: 20120919
  Receipt Date: 20120919
  Transmission Date: 20130627
  Serious: Yes (Life-Threatening)
  Sender: FDA-Public Use
  Company Number: US-009507513-1209USA005747

PATIENT
  Sex: Female

DRUGS (2)
  1. SAPHRIS [Suspect]
     Dosage: 10 mg, qd
     Route: 060
  2. INVEGA SUSTENNA [Suspect]
     Dosage: 234 mg, q4w
     Route: 030

REACTIONS (6)
  - Abdominal pain upper [Unknown]
  - Body temperature increased [Unknown]
  - Dry eye [Unknown]
  - Vision blurred [Unknown]
  - Diabetes mellitus [Unknown]
  - Inappropriate schedule of drug administration [Unknown]
